FAERS Safety Report 5197469-4 (Version None)
Quarter: 2006Q4

REPORT INFORMATION
  Report Type: 
  Country: None (occurrence: None)
  Receive Date: 20061228
  Receipt Date: 20061219
  Transmission Date: 20070319
  Serious: Yes (Death, Hospitalization)
  Sender: FDA-Public Use
  Company Number: TAP2006Q01077

PATIENT
  Age: 77 Year
  Sex: Male

DRUGS (4)
  1. LUPRON DEPOT-4 [Suspect]
     Indication: PROSTATE CANCER
     Dosage: 30 MG, 1 IN 4 M, INTRAMUSCULAR
     Route: 030
     Dates: start: 20050927, end: 20060909
  2. CASODEX [Concomitant]
  3. AVODART [Concomitant]
  4. XATRAL (ALFUZOSIN) [Concomitant]

REACTIONS (4)
  - ASTHENIA [None]
  - CONFUSIONAL STATE [None]
  - OSTEOPOROSIS [None]
  - RENAL FAILURE [None]
